FAERS Safety Report 18328344 (Version 1)
Quarter: 2020Q3

REPORT INFORMATION
  Report Type: Spontaneous
  Country: US (occurrence: US)
  Receive Date: 20200929
  Receipt Date: 20200929
  Transmission Date: 20201103
  Serious: Yes (Disabling)
  Sender: FDA-Public Use
  Company Number: None

PATIENT
  Age: 66 Year
  Sex: Female
  Weight: 77.11 kg

DRUGS (5)
  1. METRONIDAZOLE GEL [Concomitant]
     Active Substance: METRONIDAZOLE
  2. NP THYROID [Suspect]
     Active Substance: LEVOTHYROXINE\LIOTHYRONINE
     Indication: HYPOTHYROIDISM
     Dosage: ?          QUANTITY:1 DF DOSAGE FORM;?
     Route: 048
     Dates: start: 20200117, end: 20200922
  3. ESTRADIOL 0.01% [Concomitant]
  4. PROLENSA 0.07% OPHTH SOLUTIONS [Concomitant]
  5. CPAP (CONTINUOUS POSITIVE AIRWAY PRESSURE) [Concomitant]
     Active Substance: DEVICE

REACTIONS (4)
  - Loss of personal independence in daily activities [None]
  - Alopecia [None]
  - Weight increased [None]
  - Fatigue [None]

NARRATIVE: CASE EVENT DATE: 20200401
